FAERS Safety Report 20181775 (Version 1)
Quarter: 2021Q4

REPORT INFORMATION
  Report Type: Spontaneous
  Country: US (occurrence: US)
  Receive Date: 20211214
  Receipt Date: 20211214
  Transmission Date: 20220303
  Serious: No
  Sender: FDA-Public Use
  Company Number: US-GALDERMA-US2021018982

PATIENT

DRUGS (10)
  1. PROACTIV MD ADAPALENE ACNE TREATMENT [Suspect]
     Active Substance: ADAPALENE
     Indication: Acne
     Dosage: 1 DOSAGE FORM, MORNING AND NIGHT
     Route: 061
     Dates: start: 202108
  2. PROACTIV MD ADAPALENE ACNE TREATMENT [Suspect]
     Active Substance: ADAPALENE
     Indication: Skin discolouration
  3. PROACTIV MD DAILY OIL CONTROL SPF 30 [Suspect]
     Active Substance: AVOBENZONE\OCTISALATE\OCTOCRYLENE
     Indication: Acne
     Dosage: 1 DOSAGE FORM, MORNING AND NIGHT, CUTANEOUS SOLUTION
     Route: 061
     Dates: start: 202108
  4. PROACTIV MD DAILY OIL CONTROL SPF 30 [Suspect]
     Active Substance: AVOBENZONE\OCTISALATE\OCTOCRYLENE
     Indication: Skin discolouration
  5. Proactiv MD Ultra Gentle Cleanser [Concomitant]
     Indication: Acne
     Dosage: 1 DOSAGE FORM, MORNING AND NIGHT
     Route: 061
     Dates: start: 202108
  6. Proactiv MD Ultra Gentle Cleanser [Concomitant]
     Indication: Skin discolouration
  7. Proactiv MD Ultra Hydrating Moisturizer [Concomitant]
     Indication: Acne
     Dosage: 1 DOSAGE FORM, MORNING AND NIGHT
     Route: 061
     Dates: start: 202108
  8. Proactiv MD Ultra Hydrating Moisturizer [Concomitant]
     Indication: Skin discolouration
  9. Proactiv Post Acne Scar Gel [Concomitant]
     Indication: Acne
     Dosage: 1 DOSAGE FORM, MORNING AND NIGHT
     Route: 061
     Dates: start: 202108
  10. Proactiv Post Acne Scar Gel [Concomitant]
     Indication: Skin discolouration

REACTIONS (3)
  - Drug ineffective [Unknown]
  - Inappropriate schedule of product administration [Recovered/Resolved]
  - Overdose [Recovered/Resolved]

NARRATIVE: CASE EVENT DATE: 20210801
